FAERS Safety Report 16960838 (Version 1)
Quarter: 2019Q4

REPORT INFORMATION
  Report Type: Spontaneous
  Country: FR (occurrence: FR)
  Receive Date: 20191025
  Receipt Date: 20191025
  Transmission Date: 20200122
  Serious: Yes (Hospitalization)
  Sender: FDA-Public Use
  Company Number: FR-ACCORD-159015

PATIENT
  Age: 68 Year
  Sex: Male
  Weight: 90 kg

DRUGS (8)
  1. MEROPENEM ARROW [Suspect]
     Active Substance: MEROPENEM
     Indication: INFECTION
     Dosage: STRENGTH: 1 G
     Route: 042
     Dates: start: 20190912, end: 20190917
  2. TRIMEBUTINE [Concomitant]
     Active Substance: TRIMEBUTINE
  3. AMIKACIN MYLAN [Suspect]
     Active Substance: AMIKACIN
     Indication: INFECTION
     Dosage: STRENGTH: 1 G, POWDER FOR SOLUTION FOR INJECTION IN VIAL
     Route: 042
     Dates: start: 20190911, end: 20190912
  4. TAMSULOSIN/TAMSULOSIN HYDROCHLORIDE [Concomitant]
  5. DAPTOMYCIN ACCORD [Suspect]
     Active Substance: DAPTOMYCIN
     Indication: INFECTION
     Route: 042
     Dates: start: 20190912, end: 20190916
  6. FENOFIBRATE. [Concomitant]
     Active Substance: FENOFIBRATE
  7. PIPERACILLINE TAZOBACTAM MYLAN [Suspect]
     Active Substance: PIPERACILLIN SODIUM\TAZOBACTAM SODIUM
     Indication: INFECTION
     Route: 042
     Dates: start: 20190911, end: 20190912
  8. AVODART [Concomitant]
     Active Substance: DUTASTERIDE

REACTIONS (2)
  - Thrombocytopenia [Recovered/Resolved]
  - Haematuria [Recovering/Resolving]

NARRATIVE: CASE EVENT DATE: 20190913
